FAERS Safety Report 5030799-5 (Version None)
Quarter: 2006Q2

REPORT INFORMATION
  Report Type: 
  Country: None (occurrence: None)
  Receive Date: 20060614
  Receipt Date: 20060605
  Transmission Date: 20061013
  Serious: Yes (Other)
  Sender: FDA-Public Use
  Company Number: 2006072459

PATIENT
  Sex: Male

DRUGS (1)
  1. ARTHROTEC [Suspect]
     Indication: ILL-DEFINED DISORDER
     Dosage: ORAL
     Route: 048

REACTIONS (4)
  - BLOOD LACTIC ACID INCREASED [None]
  - CAPILLARY LEAK SYNDROME [None]
  - HYPOTENSION [None]
  - HYPOVOLAEMIC SHOCK [None]
